FAERS Safety Report 5943547-9 (Version None)
Quarter: 2008Q4

REPORT INFORMATION
  Report Type: 
  Country: None (occurrence: None)
  Receive Date: 20081106
  Receipt Date: 20080929
  Transmission Date: 20090506
  Serious: Yes (Other)
  Sender: FDA-Public Use
  Company Number: PHHY2008DE21722

PATIENT
  Sex: Male
  Weight: 86 kg

DRUGS (7)
  1. GLEEVEC [Suspect]
     Indication: GASTROINTESTINAL STROMAL TUMOUR
     Dosage: UNK
     Route: 048
     Dates: start: 20070710
  2. RAMIPRIL [Concomitant]
     Dosage: 5 MG/DAY
  3. CARVEDILOL [Concomitant]
     Dosage: 25 MG/DAY
  4. OMEP [Concomitant]
     Dosage: 20 MG/DAY
  5. ASPIRIN [Concomitant]
     Dosage: 100 MG/DAY
  6. DICLOFENAC [Concomitant]
     Dosage: 75 MG/DAY
  7. TRAMADOL HCL [Concomitant]
     Dosage: 100 MG/DAY

REACTIONS (3)
  - MUSCLE RUPTURE [None]
  - MUSCLE SPASMS [None]
  - PAIN IN EXTREMITY [None]
